FAERS Safety Report 9382973 (Version 2)
Quarter: 2013Q3

REPORT INFORMATION
  Report Type: Spontaneous
  Country: IT (occurrence: IT)
  Receive Date: 20130703
  Receipt Date: 20130718
  Transmission Date: 20140515
  Serious: Yes (Life-Threatening)
  Sender: FDA-Public Use
  Company Number: PHHY2013IT068993

PATIENT
  Age: 44 Year
  Sex: Male

DRUGS (1)
  1. DICLOFENAC [Suspect]
     Route: 030

REACTIONS (16)
  - Embolia cutis medicamentosa [Unknown]
  - Necrotising fasciitis [Unknown]
  - Staphylococcal infection [Unknown]
  - Swelling [Unknown]
  - Abscess [Unknown]
  - Pain in extremity [Unknown]
  - Erythema [Unknown]
  - Skin necrosis [Unknown]
  - Pain [Unknown]
  - Oedema [Unknown]
  - Skin discolouration [Unknown]
  - Muscle abscess [Unknown]
  - Blister [Unknown]
  - Fat tissue increased [Unknown]
  - Skin hypertrophy [Unknown]
  - Segmented hyalinising vasculitis [Unknown]
